FAERS Safety Report 10184249 (Version 1)
Quarter: 2014Q2

REPORT INFORMATION
  Report Type: Spontaneous
  Country: US (occurrence: US)
  Receive Date: 20140520
  Receipt Date: 20140520
  Transmission Date: 20141212
  Serious: No
  Sender: FDA-Public Use
  Company Number: US-ASTRAZENECA-2014SE18957

PATIENT
  Sex: Female

DRUGS (1)
  1. BUDESONIDE [Suspect]
     Dosage: GENERIC
     Route: 065

REACTIONS (2)
  - Adverse drug reaction [Unknown]
  - Circumstance or information capable of leading to medication error [Unknown]
